FAERS Safety Report 8492868-7 (Version None)
Quarter: 2012Q3

REPORT INFORMATION
  Report Type: 
  Country: None (occurrence: None)
  Receive Date: 20120706
  Receipt Date: 20120627
  Transmission Date: 20120928
  Serious: Yes (Hospitalization, Other)
  Sender: FDA-Public Use
  Company Number: US-JNJFOC-20120314693

PATIENT
  Sex: Female

DRUGS (26)
  1. LEVAQUIN [Suspect]
     Indication: UPPER RESPIRATORY TRACT INFECTION
     Route: 048
     Dates: start: 20100301
  2. VITAMINS NOS [Concomitant]
     Indication: PRODUCT USED FOR UNKNOWN INDICATION
     Route: 065
  3. VITAMIN D [Concomitant]
     Indication: NUTRITIONAL SUPPORT
     Route: 065
  4. FUROSEMIDE [Concomitant]
     Indication: CARDIAC FAILURE CONGESTIVE
     Route: 065
  5. ALBUTEROL [Concomitant]
     Indication: CHRONIC OBSTRUCTIVE PULMONARY DISEASE
     Route: 065
  6. SINGULAIR [Concomitant]
     Indication: HYPERSENSITIVITY
     Route: 065
  7. ZYRTEC [Concomitant]
     Indication: HYPERSENSITIVITY
     Route: 065
  8. TUSSIONEX [Concomitant]
     Indication: COUGH
     Route: 065
  9. TIZANIDINE HYDROCHLORIDE [Concomitant]
     Indication: PAIN
     Route: 065
  10. ADVAIR DISKUS 100/50 [Suspect]
     Indication: CHRONIC OBSTRUCTIVE PULMONARY DISEASE
     Route: 065
  11. METHYLPREDNISOLONE [Suspect]
     Indication: EMPHYSEMA
     Route: 065
  12. METHYLPREDNISOLONE [Suspect]
     Indication: CHRONIC OBSTRUCTIVE PULMONARY DISEASE
     Route: 065
  13. DOXYCYCLINE [Concomitant]
     Indication: ANTIBIOTIC THERAPY
     Route: 065
  14. PROPOXYPHENE HCL [Concomitant]
     Indication: PAIN
     Route: 065
  15. HYDROCODONE BITARTRATE [Concomitant]
     Indication: PAIN
     Route: 065
  16. PRILOSEC [Concomitant]
     Indication: GASTROOESOPHAGEAL REFLUX DISEASE
     Route: 065
  17. PRAMIPEXOLE DIHYCHLORIDE [Concomitant]
     Indication: RESTLESS LEGS SYNDROME
     Route: 065
  18. ALBUTEROL [Concomitant]
     Indication: EMPHYSEMA
     Route: 065
  19. ADVAIR DISKUS 100/50 [Suspect]
     Indication: EMPHYSEMA
     Route: 065
  20. LEXAPRO [Concomitant]
     Indication: DEPRESSION
     Route: 065
  21. CITALOPRAM HYDROBROMIDE [Concomitant]
     Indication: ANXIETY
     Route: 065
  22. PREDNISONE [Suspect]
     Indication: EMPHYSEMA
     Route: 048
  23. PREDNISONE [Suspect]
     Indication: CHRONIC OBSTRUCTIVE PULMONARY DISEASE
     Route: 048
  24. POTASSIUM [Concomitant]
     Indication: NUTRITIONAL SUPPORT
     Route: 065
  25. AZITHROMYCIN [Concomitant]
     Indication: ANTIBIOTIC THERAPY
     Route: 065
  26. NYSTATIN [Concomitant]
     Indication: ANTIBIOTIC THERAPY
     Route: 065

REACTIONS (2)
  - TENDON RUPTURE [None]
  - MENISCUS LESION [None]
